FAERS Safety Report 5289336-2 (Version None)
Quarter: 2007Q2

REPORT INFORMATION
  Report Type: 
  Country: None (occurrence: None)
  Receive Date: 20070406
  Receipt Date: 20070326
  Transmission Date: 20071010
  Serious: Yes (Hospitalization)
  Sender: FDA-Public Use
  Company Number: FR-NOVOPROD-262100

PATIENT
  Age: 70 Year
  Sex: Female

DRUGS (10)
  1. NOVONORM [Suspect]
     Indication: DRUG USE FOR UNKNOWN INDICATION
     Dosage: 1 MG, TID
     Route: 048
     Dates: end: 20070203
  2. STAGID [Suspect]
     Indication: DRUG USE FOR UNKNOWN INDICATION
     Dates: end: 20070203
  3. FONZYLANE [Concomitant]
     Indication: DRUG USE FOR UNKNOWN INDICATION
     Dates: start: 20061102
  4. PLAVIX [Concomitant]
     Indication: DRUG USE FOR UNKNOWN INDICATION
     Dates: start: 20061102
  5. COZAAR [Concomitant]
     Indication: DRUG USE FOR UNKNOWN INDICATION
  6. TILCOTIL [Concomitant]
     Indication: DRUG USE FOR UNKNOWN INDICATION
  7. ALLOPURINOL [Concomitant]
     Indication: DRUG USE FOR UNKNOWN INDICATION
  8. DI-ANTALVIC                        /00016701/ [Concomitant]
     Indication: DRUG USE FOR UNKNOWN INDICATION
  9. PRAXILENE [Concomitant]
     Indication: DRUG USE FOR UNKNOWN INDICATION
  10. DURAGESIC-100 [Concomitant]
     Indication: DRUG USE FOR UNKNOWN INDICATION

REACTIONS (1)
  - CUTANEOUS VASCULITIS [None]
